FAERS Safety Report 9939159 (Version 1)
Quarter: 2014Q1

REPORT INFORMATION
  Report Type: Report from Study
  Country: CN (occurrence: CN)
  Receive Date: 20140303
  Receipt Date: 20140303
  Transmission Date: 20141002
  Serious: Yes (Hospitalization)
  Sender: FDA-Public Use
  Company Number: CN-ASTELLAS-2014US002026

PATIENT
  Age: 79 Year
  Sex: Female

DRUGS (3)
  1. ERLOTINIB TABLET [Suspect]
     Indication: NON-SMALL CELL LUNG CANCER
     Dosage: 150 MG, UID/QD
     Route: 048
     Dates: start: 20130717
  2. AMLODIPINE BESYLATE [Concomitant]
     Indication: HYPERTENSION
     Dosage: 5 MG, UID/QD
     Route: 048
     Dates: start: 201303
  3. SIMVASTATIN [Concomitant]
     Indication: DIABETES MELLITUS
     Dosage: 10 MG, UID/QD
     Route: 048
     Dates: start: 201303

REACTIONS (3)
  - Motion sickness [Recovering/Resolving]
  - Alopecia [Not Recovered/Not Resolved]
  - Nasopharyngitis [Unknown]
